FAERS Safety Report 10163991 (Version 2)
Quarter: 2014Q2

REPORT INFORMATION
  Report Type: Spontaneous
  Country: US (occurrence: US)
  Receive Date: 20140510
  Receipt Date: 20140510
  Transmission Date: 20141212
  Serious: No
  Sender: FDA-Public Use
  Company Number: US-BRISTOL-MYERS SQUIBB COMPANY-19788033

PATIENT
  Age: 53 Year
  Sex: Female
  Weight: 63.94 kg

DRUGS (1)
  1. BYETTA [Suspect]
     Dosage: 2MG AS PER FU
     Route: 058
     Dates: start: 2006, end: 2013

REACTIONS (4)
  - Nausea [Recovered/Resolved]
  - Feeling cold [Recovered/Resolved]
  - Hypoaesthesia [Recovered/Resolved]
  - Early satiety [Unknown]
